FAERS Safety Report 10584815 (Version 3)
Quarter: 2014Q4

REPORT INFORMATION
  Report Type: Report from Study
  Country: US (occurrence: US)
  Receive Date: 20141114
  Receipt Date: 20141120
  Transmission Date: 20150529
  Serious: Yes (Death, Hospitalization, Other)
  Sender: FDA-Public Use
  Company Number: US-UNITED THERAPEUTICS-UNT-2014-005193

PATIENT
  Age: 61 Year
  Sex: Female
  Weight: 90.7 kg

DRUGS (18)
  1. PLACEBO [Suspect]
     Active Substance: UNSPECIFIED INGREDIENT
     Dosage: 2 TAB, QID
     Dates: start: 20131225, end: 20140803
  2. ALLOPURINOL. [Concomitant]
     Active Substance: ALLOPURINOL
     Indication: PRODUCT USED FOR UNKNOWN INDICATION
     Dosage: 1 TAB, DAILY DOSE
     Route: 048
  3. LASIX [Concomitant]
     Active Substance: FUROSEMIDE
     Indication: PULMONARY ARTERIAL HYPERTENSION
     Dosage: 4 TAB, QD
     Route: 048
     Dates: start: 200802
  4. METFORMIN [Concomitant]
     Active Substance: METFORMIN HYDROCHLORIDE
     Indication: DIABETES MELLITUS
     Dosage: 1 TAB DAILY
     Route: 048
     Dates: start: 200802
  5. BLINDED BERAPROST SODIUM [Suspect]
     Active Substance: BERAPROST SODIUM
     Dosage: 2 TAB, QID
     Dates: start: 20131225, end: 20140803
  6. LOPRESSOR [Concomitant]
     Active Substance: METOPROLOL TARTRATE
     Indication: HYPERTENSION
     Dosage: 25 TO 50 MG, BID
     Route: 048
  7. TYVASO [Suspect]
     Active Substance: TREPROSTINIL
     Indication: PULMONARY ARTERIAL HYPERTENSION
     Dosage: 90 ?G, QID
     Dates: start: 20080229, end: 20140803
  8. REVATIO [Concomitant]
     Active Substance: SILDENAFIL CITRATE
     Indication: PULMONARY ARTERIAL HYPERTENSION
     Dosage: 2 TAB, Q8H
     Route: 048
     Dates: start: 200802
  9. LOPRESSOR [Concomitant]
     Active Substance: METOPROLOL TARTRATE
     Dosage: 50 TO 100 MG, DAILY DOSE
     Route: 048
     Dates: start: 2008
  10. FLONASE                            /00908302/ [Concomitant]
     Dosage: 1 SPRAY EACH NOSTRIL, BID
     Route: 045
  11. PLACEBO [Suspect]
     Active Substance: UNSPECIFIED INGREDIENT
     Indication: PULMONARY ARTERIAL HYPERTENSION
     Dosage: 1 TAB, QID
     Route: 048
     Dates: start: 20131211, end: 20131225
  12. POTASSIUM CHLORIDE. [Concomitant]
     Active Substance: POTASSIUM CHLORIDE
     Indication: HYPOKALAEMIA
     Dosage: 5 CAPSULES BY MOUTH EVERY MORNING AND 4 CAPSULES BY MOUTH EVERY EVENING
     Route: 048
     Dates: start: 200802
  13. SYNTHROID [Concomitant]
     Active Substance: LEVOTHYROXINE SODIUM
     Indication: HYPERTHYROIDISM
     Dosage: 1 TAB DAILY
     Route: 048
     Dates: start: 2010
  14. BLINDED BERAPROST SODIUM [Suspect]
     Active Substance: BERAPROST SODIUM
     Indication: PULMONARY ARTERIAL HYPERTENSION
     Dosage: 1 TAB, QID
     Route: 048
     Dates: start: 20131211, end: 20131225
  15. REMODULIN [Suspect]
     Active Substance: TREPROSTINIL
     Indication: PULMONARY ARTERIAL HYPERTENSION
     Dosage: UNK
     Route: 041
     Dates: start: 2014
  16. VELETRI [Suspect]
     Active Substance: EPOPROSTENOL
     Indication: PULMONARY ARTERIAL HYPERTENSION
  17. ALDACTONE [Concomitant]
     Active Substance: SPIRONOLACTONE
     Indication: PULMONARY ARTERIAL HYPERTENSION
     Dosage: 1 TAB, BID
     Route: 048
     Dates: start: 20120819
  18. TRACLEER [Concomitant]
     Active Substance: BOSENTAN\BOSENTAN MONOHYDRATE
     Indication: PULMONARY ARTERIAL HYPERTENSION
     Dosage: 1 TAB, BID
     Route: 048
     Dates: start: 20131122

REACTIONS (12)
  - Anxiety [Not Recovered/Not Resolved]
  - Cough [Not Recovered/Not Resolved]
  - Multiple allergies [Not Recovered/Not Resolved]
  - Thrombocytopenia [Unknown]
  - Acute kidney injury [Unknown]
  - Syncope [Recovered/Resolved]
  - Haematoma [Unknown]
  - Nausea [Not Recovered/Not Resolved]
  - Fluid retention [Unknown]
  - Pulmonary arterial hypertension [Fatal]
  - Hyperthyroidism [Not Recovered/Not Resolved]
  - Micturition urgency [Not Recovered/Not Resolved]

NARRATIVE: CASE EVENT DATE: 2010
